FAERS Safety Report 6055893-1 (Version None)
Quarter: 2009Q1

REPORT INFORMATION
  Report Type: 
  Country: None (occurrence: None)
  Receive Date: 20090128
  Receipt Date: 20090119
  Transmission Date: 20090719
  Serious: Yes (Other)
  Sender: FDA-Public Use
  Company Number: PHBS2009CA00555

PATIENT
  Age: 83 Year
  Sex: Male

DRUGS (1)
  1. DESFERAL [Suspect]
     Route: 058

REACTIONS (1)
  - RENAL INJURY [None]
